FAERS Safety Report 9861692 (Version 1)
Quarter: 2014Q1

REPORT INFORMATION
  Report Type: Spontaneous
  Country: US (occurrence: None)
  Receive Date: 20140131
  Receipt Date: 20140131
  Transmission Date: 20141002
  Serious: Yes (Life-Threatening, Disabling, Other)
  Sender: FDA-Public Use
  Company Number: None

PATIENT
  Age: 65 Year
  Sex: Female
  Weight: 96.16 kg

DRUGS (9)
  1. INVOKANA (CANAGLIFLOZIN) [Suspect]
     Indication: DIABETES MELLITUS
     Route: 048
     Dates: start: 20130722, end: 20131024
  2. LANTUS [Concomitant]
  3. METFORMIN [Concomitant]
  4. LASIZ [Concomitant]
  5. VICTOZA [Concomitant]
  6. LISINIPROL [Concomitant]
  7. HUMALOG [Concomitant]
  8. TEMOBRIBRATE [Concomitant]
  9. TYLENOL [Concomitant]

REACTIONS (7)
  - Pain [None]
  - Weight increased [None]
  - Stress [None]
  - Fungal infection [None]
  - Thirst [None]
  - Fluid retention [None]
  - Multi-organ disorder [None]
